FAERS Safety Report 7352709-8 (Version None)
Quarter: 2011Q1

REPORT INFORMATION
  Report Type: 
  Country: None (occurrence: None)
  Receive Date: 20110304
  Receipt Date: 20110222
  Transmission Date: 20110831
  Serious: Yes (Other)
  Sender: FDA-Public Use
  Company Number: 027993

PATIENT
  Age: 27 Year
  Sex: Female

DRUGS (3)
  1. ZONISAMIDE [Concomitant]
  2. VIMPAT [Suspect]
     Indication: EPILEPSY
     Dosage: (50 MG BID)
     Dates: start: 20110201, end: 20110201
  3. LAMOTRIGINE [Concomitant]

REACTIONS (1)
  - RASH [None]
